FAERS Safety Report 13384219 (Version 1)
Quarter: 2017Q1

REPORT INFORMATION
  Report Type: Spontaneous
  Country: US (occurrence: US)
  Receive Date: 20170329
  Receipt Date: 20170329
  Transmission Date: 20170429
  Serious: No
  Sender: FDA-Public Use
  Company Number: US-MYLANLABS-2016M1058842

PATIENT
  Age: 83 Year
  Sex: Female

DRUGS (2)
  1. THYROID [Concomitant]
     Active Substance: LEVOTHYROXINE\LIOTHYRONINE
     Indication: PRODUCT USED FOR UNKNOWN INDICATION
     Dosage: UNK
  2. EMSAM [Suspect]
     Active Substance: SELEGILINE
     Indication: DEPRESSION
     Dosage: 12 MG, QD
     Route: 062
     Dates: start: 201610

REACTIONS (1)
  - Sinus headache [Not Recovered/Not Resolved]

NARRATIVE: CASE EVENT DATE: 201612
